FAERS Safety Report 5718931-9 (Version None)
Quarter: 2008Q2

REPORT INFORMATION
  Report Type: 
  Country: None (occurrence: None)
  Receive Date: 20080425
  Receipt Date: 20080414
  Transmission Date: 20081010
  Serious: Yes (Other)
  Sender: FDA-Public Use
  Company Number: AU-PFIZER INC-2008035265

PATIENT
  Sex: Female

DRUGS (6)
  1. CHAMPIX [Suspect]
  2. CARDIZEM [Concomitant]
  3. GLIMEL [Concomitant]
  4. GLUCOBAY [Concomitant]
  5. CARTIA XT [Concomitant]
  6. LIPITOR [Concomitant]

REACTIONS (1)
  - HYPOAESTHESIA ORAL [None]
